FAERS Safety Report 13733796 (Version 2)
Quarter: 2017Q3

REPORT INFORMATION
  Report Type: Spontaneous
  Country: US (occurrence: US)
  Receive Date: 20170707
  Receipt Date: 20170814
  Transmission Date: 20171127
  Serious: Yes (Other)
  Sender: FDA-Public Use
  Company Number: US-009507513-1706USA010916

PATIENT
  Age: 44 Year
  Sex: Male
  Weight: 101.13 kg

DRUGS (1)
  1. ZEPATIER [Suspect]
     Active Substance: ELBASVIR\GRAZOPREVIR
     Indication: HEPATITIS C
     Dosage: UNK
     Route: 048
     Dates: start: 20161208, end: 20170307

REACTIONS (1)
  - Hepatitis C [Not Recovered/Not Resolved]

NARRATIVE: CASE EVENT DATE: 20170621
